FAERS Safety Report 5917132-9 (Version None)
Quarter: 2008Q4

REPORT INFORMATION
  Report Type: 
  Country: None (occurrence: None)
  Receive Date: 20081010
  Receipt Date: 20081010
  Transmission Date: 20090506
  Serious: Yes (Death)
  Sender: FDA-Public Use
  Company Number: None

PATIENT
  Sex: Female
  Weight: 65.7716 kg

DRUGS (1)
  1. PAXIL [Suspect]
     Indication: DEPRESSION
     Dosage: 1 PILL 20 MIL PER DAY
     Dates: start: 19960101, end: 20080101

REACTIONS (3)
  - ABORTION SPONTANEOUS [None]
  - HAEMORRHAGE [None]
  - STRESS [None]
